FAERS Safety Report 11328913 (Version 3)
Quarter: 2016Q2

REPORT INFORMATION
  Report Type: Spontaneous
  Country: US (occurrence: US)
  Receive Date: 20150801
  Receipt Date: 20160405
  Transmission Date: 20160815
  Serious: Yes (Life-Threatening, Hospitalization, Other)
  Sender: FDA-Public Use
  Company Number: US-AUROBINDO-AUR-APL-2015-06783

PATIENT
  Age: 65 Year
  Sex: Female

DRUGS (3)
  1. ACICLOVIR INJECTION [Suspect]
     Active Substance: ACYCLOVIR
     Indication: HERPES ZOSTER CUTANEOUS DISSEMINATED
     Dosage: 1 G
     Route: 042
  2. PREDNISONE. [Suspect]
     Active Substance: PREDNISONE
     Indication: HERPES ZOSTER CUTANEOUS DISSEMINATED
     Route: 065
  3. VALACICLOVIR [Suspect]
     Active Substance: VALACYCLOVIR HYDROCHLORIDE
     Indication: HERPES ZOSTER CUTANEOUS DISSEMINATED
     Dosage: 1 G EVERY 8 HOURS
     Route: 065

REACTIONS (9)
  - Neurotoxicity [Recovered/Resolved]
  - Ischaemia [Recovered/Resolved]
  - Sinus tachycardia [Recovered/Resolved]
  - Condition aggravated [Recovered/Resolved]
  - Electrocardiogram T wave inversion [Recovered/Resolved]
  - Affect lability [Recovered/Resolved]
  - Myoclonus [Recovered/Resolved]
  - Hallucination [Recovered/Resolved]
  - Agitation [Recovered/Resolved]
